FAERS Safety Report 7927238-0 (Version None)
Quarter: 2011Q4

REPORT INFORMATION
  Report Type: 
  Country: None (occurrence: None)
  Receive Date: 20111116
  Receipt Date: 20111103
  Transmission Date: 20120403
  Serious: Yes (Hospitalization)
  Sender: FDA-Public Use
  Company Number: 11-688

PATIENT
  Age: 65 Year
  Sex: Female

DRUGS (5)
  1. IBUPROFEN [Suspect]
     Indication: SCIATICA
     Dosage: 400MG;TID;ORAL
     Route: 048
     Dates: start: 20110226, end: 20110228
  2. AMLODIPINE [Concomitant]
  3. NAPROXEN [Suspect]
     Indication: SCIATICA
     Dosage: 250MG;TID;ORAL
     Route: 048
     Dates: start: 20110225, end: 20110228
  4. BENDROFLUMETHIAZIDE [Concomitant]
  5. ACETAMINOPHEN AND CODEINE PHOSPHATE [Concomitant]

REACTIONS (3)
  - GASTROINTESTINAL HAEMORRHAGE [None]
  - DUODENAL ULCER [None]
  - GASTRIC ULCER [None]
